FAERS Safety Report 9883185 (Version 1)
Quarter: 2014Q1

REPORT INFORMATION
  Report Type: Spontaneous
  Country: US (occurrence: US)
  Receive Date: 20140208
  Receipt Date: 20140208
  Transmission Date: 20141002
  Serious: No
  Sender: FDA-Public Use
  Company Number: US-009507513-1312USA001163

PATIENT
  Sex: Female
  Weight: 63.49 kg

DRUGS (2)
  1. MIRALAX [Suspect]
     Indication: SERIAL TRANSVERSE ENTEROPLASTY
     Dosage: 17 G, QD
     Route: 048
     Dates: start: 2012
  2. SYNTHROID [Concomitant]
     Indication: HYPOTHYROIDISM
     Dosage: UNK, UNKNOWN

REACTIONS (3)
  - Foreign body [Recovered/Resolved]
  - Incorrect drug administration duration [Unknown]
  - Product contamination physical [Unknown]
